FAERS Safety Report 6653824-4 (Version None)
Quarter: 2010Q1

REPORT INFORMATION
  Report Type: 
  Country: None (occurrence: None)
  Receive Date: 20100326
  Receipt Date: 20100316
  Transmission Date: 20100710
  Serious: Yes (Life-Threatening, Hospitalization)
  Sender: FDA-Public Use
  Company Number: B0635408A

PATIENT
  Sex: Female

DRUGS (2)
  1. HYCAMTIN [Suspect]
     Indication: CERVIX CARCINOMA
     Dosage: 25MG CYCLIC
     Route: 048
     Dates: start: 20100205, end: 20100211
  2. CARBOPLATIN [Suspect]
     Indication: CERVIX CARCINOMA
     Dosage: 684MG PER DAY
     Route: 042
     Dates: start: 20100205

REACTIONS (5)
  - DIARRHOEA [None]
  - EPISTAXIS [None]
  - NEUTROPENIA [None]
  - RENAL FAILURE ACUTE [None]
  - THROMBOCYTOPENIA [None]
